FAERS Safety Report 5961814-X (Version None)
Quarter: 2008Q4

REPORT INFORMATION
  Report Type: 
  Country: None (occurrence: None)
  Receive Date: 20081121
  Receipt Date: 20071018
  Transmission Date: 20090506
  Serious: No
  Sender: FDA-Public Use
  Company Number: US-BRISTOL-MYERS SQUIBB COMPANY-13947353

PATIENT
  Age: 84 Year
  Sex: Female

DRUGS (1)
  1. AVALIDE [Suspect]
     Route: 048

REACTIONS (2)
  - PRURITUS [None]
  - URTICARIA [None]
